FAERS Safety Report 17016916 (Version 29)
Quarter: 2023Q1

REPORT INFORMATION
  Report Type: Report from Study
  Country: GB (occurrence: GB)
  Receive Date: 20191111
  Receipt Date: 20230224
  Transmission Date: 20230417
  Serious: Yes (Life-Threatening, Hospitalization, Other)
  Sender: FDA-Public Use
  Company Number: GB-ROCHE-1671632

PATIENT
  Age: 45 Year
  Sex: Female
  Weight: 80 kg

DRUGS (78)
  1. EXEMESTANE [Suspect]
     Active Substance: EXEMESTANE
     Indication: Breast cancer metastatic
     Dosage: 25 MG, 1X/DAY
     Route: 048
     Dates: start: 20150518
  2. EXEMESTANE [Suspect]
     Active Substance: EXEMESTANE
     Dosage: 25 MG, 1X/DAY
     Route: 048
  3. EXEMESTANE [Suspect]
     Active Substance: EXEMESTANE
     Dosage: 600 MG, EVERY 3 WEEKS
     Dates: start: 20180723
  4. EXEMESTANE [Suspect]
     Active Substance: EXEMESTANE
     Dosage: UNK
  5. EXEMESTANE [Suspect]
     Active Substance: EXEMESTANE
     Dosage: 600 MG, EVERY 3 WEEKS
     Route: 065
  6. DOCETAXEL [Suspect]
     Active Substance: DOCETAXEL
     Indication: Breast cancer metastatic
     Dosage: 120 MG, EVERY 3 WEEKS
     Route: 042
     Dates: start: 20150808, end: 20151117
  7. DOCETAXEL [Suspect]
     Active Substance: DOCETAXEL
     Dosage: 120 MG, EVERY 3 WEEKS
     Route: 042
     Dates: start: 20150814, end: 20151117
  8. DOCETAXEL [Suspect]
     Active Substance: DOCETAXEL
     Dosage: 120 MG, EVERY 3 WEEKS
     Route: 042
     Dates: start: 20150814, end: 20151117
  9. DOCETAXEL [Suspect]
     Active Substance: DOCETAXEL
     Dosage: 600 MG, EVERY 3 WEEKS
     Route: 042
     Dates: start: 20151217, end: 20160308
  10. DOCETAXEL [Suspect]
     Active Substance: DOCETAXEL
     Dosage: 600 MG, EVERY 3 WEEKS
     Route: 042
     Dates: start: 20150217, end: 20160308
  11. PERJETA [Suspect]
     Active Substance: PERTUZUMAB
     Indication: Breast cancer metastatic
     Dosage: 840 MG, 1X/DAY (1X, ONE CYCLE, LOADING DOSE; IN TOTAL)
     Route: 042
     Dates: start: 20150804, end: 20150804
  12. PERJETA [Suspect]
     Active Substance: PERTUZUMAB
     Dosage: 420 MG, EVERY 3 WEEKS (DATE OF MOST RECENT DOSE (420 MG) OF PERTUZUMAB 17NOV2015)
     Route: 042
     Dates: start: 20150825, end: 20151117
  13. PERJETA [Suspect]
     Active Substance: PERTUZUMAB
     Dosage: 420 MG, EVERY 3 WEEKS (DATE OF MOST RECENT DOSE (420 MG) OF PERTUZUMAB 08/MAR/2016)
     Route: 042
     Dates: start: 20151217, end: 20160308
  14. PERJETA [Suspect]
     Active Substance: PERTUZUMAB
     Dosage: 840 MG, EVERY 3 WEEKS (DATE OF MOST RECENT DOSE (420 MG) OF PERTUZUMAB 08/MAR/2016)
     Route: 042
     Dates: start: 20160623, end: 20160623
  15. PERJETA [Suspect]
     Active Substance: PERTUZUMAB
     Dosage: 420 MG, 1X/DAY
     Route: 042
     Dates: start: 20160715
  16. PERJETA [Suspect]
     Active Substance: PERTUZUMAB
     Dosage: 840MG, 1X (LOADING DOSE)
     Route: 042
     Dates: start: 20160623, end: 20160623
  17. PERJETA [Suspect]
     Active Substance: PERTUZUMAB
     Dosage: UNK
  18. PERJETA [Suspect]
     Active Substance: PERTUZUMAB
     Dosage: 420 MG, EVERY 3 WEEKS (DATE OF MOST RECENT DOSE (420 MG) OF PERTUZUMAB 17NOV2015)
     Route: 042
  19. PERJETA [Suspect]
     Active Substance: PERTUZUMAB
     Dosage: 420 MG, EVERY 3 WEEKS (DATE OF MOST RECENT DOSE (420 MG) OF PERTUZUMAB 08MAR2016). MAINTAINANCE DOSE
     Route: 042
  20. PERJETA [Suspect]
     Active Substance: PERTUZUMAB
     Dosage: 840MG, EVERY 3 WEEKS (DATE OF MOST RECENT DOSE (420 MG) 08MAR2016 1X (LOADING DOSE); IN TOTAL
     Route: 042
  21. PERJETA [Suspect]
     Active Substance: PERTUZUMAB
     Dosage: 840 MG, 1X, ONE CYCLE, LOADING DOSE; IN TOTAL
     Route: 042
  22. HERCEPTIN [Suspect]
     Active Substance: TRASTUZUMAB
     Indication: Breast cancer metastatic
     Dosage: 600 MG, ONCE IN 3 WEEKS
     Route: 058
     Dates: start: 20150825, end: 20151117
  23. HERCEPTIN [Suspect]
     Active Substance: TRASTUZUMAB
     Dosage: 600 MG, EVERY 3 WEEKS (LOADING DOSE)
     Route: 058
     Dates: start: 20160308, end: 20160308
  24. HERCEPTIN [Suspect]
     Active Substance: TRASTUZUMAB
     Dosage: 600 MG, EVERY 3 WEEKS
     Route: 058
     Dates: start: 20160623
  25. HERCEPTIN [Suspect]
     Active Substance: TRASTUZUMAB
     Dosage: 600 MG, EVERY 3 WEEKS
     Route: 058
     Dates: start: 20160723
  26. HERCEPTIN [Suspect]
     Active Substance: TRASTUZUMAB
     Dosage: 600 MG, EVERY 3 WEEKS
     Route: 058
  27. HERCEPTIN [Suspect]
     Active Substance: TRASTUZUMAB
     Dosage: 600 MG, EVERY 3 WEEKS
     Route: 058
  28. HERCEPTIN [Suspect]
     Active Substance: TRASTUZUMAB
     Dosage: 600 MG, EVERY 3 WEEKS, LOADING DOSE
     Route: 058
  29. TRASTUZUMAB [Suspect]
     Active Substance: TRASTUZUMAB
     Indication: Breast cancer metastatic
     Dosage: 483 MG, EVERY 3 WEEKS
     Route: 042
     Dates: start: 20150803, end: 20150803
  30. TRASTUZUMAB [Suspect]
     Active Substance: TRASTUZUMAB
     Dosage: 600 MG, EVERY 3 WEEKS DATE OF MOST RECENT DOSE (600MG ) OF TRASTUZUMAB: 23/JUN/2016
     Route: 041
     Dates: start: 20151217, end: 20160308
  31. TRASTUZUMAB [Suspect]
     Active Substance: TRASTUZUMAB
     Dosage: 600 MG, EVERY 3 WEEKS
     Route: 058
     Dates: start: 20160723
  32. TRASTUZUMAB [Suspect]
     Active Substance: TRASTUZUMAB
     Dosage: 600 MG LOADING DOSE
     Route: 058
     Dates: start: 20151217, end: 20160308
  33. TRASTUZUMAB [Suspect]
     Active Substance: TRASTUZUMAB
     Dosage: 600MG
     Route: 058
     Dates: start: 20150825, end: 20151117
  34. TRASTUZUMAB [Suspect]
     Active Substance: TRASTUZUMAB
     Dosage: 483 MG, DAILY
     Dates: start: 20150803, end: 20150803
  35. TRASTUZUMAB [Suspect]
     Active Substance: TRASTUZUMAB
     Dosage: 483 MG, EVERY 3 WEEKS
     Route: 042
  36. TRASTUZUMAB [Suspect]
     Active Substance: TRASTUZUMAB
     Dosage: 600 MG, EVERY 3 WEEKS
     Route: 042
  37. TRASTUZUMAB [Suspect]
     Active Substance: TRASTUZUMAB
     Dosage: 600 MG, EVERY 3 WEEKS (DATE OF MOST RECENT DOSE (600MG ) OF TRASTUZUMAB: 23JUN2016 )
     Route: 042
  38. TRASTUZUMAB [Suspect]
     Active Substance: TRASTUZUMAB
     Dosage: 600 MG, EVERY 3 WEEKS (DATE OF MOST RECENT DOSE (600MG ) OF TRASTUZUMAB: 23JUN2016 )
     Route: 042
     Dates: start: 20160308, end: 20160308
  39. HYALURONIDASE (HUMAN RECOMBINANT) [Suspect]
     Active Substance: HYALURONIDASE (HUMAN RECOMBINANT)
     Dosage: 600 MILLIGRAM, 3 TIMES IN A WEEK, MAINTAINANCE DOSE
     Route: 058
     Dates: start: 20150825, end: 20151117
  40. HYALURONIDASE (HUMAN RECOMBINANT) [Suspect]
     Active Substance: HYALURONIDASE (HUMAN RECOMBINANT)
     Dosage: 600 MG ONCE 2 WEEKS
     Route: 058
     Dates: start: 20160623
  41. HYALURONIDASE (HUMAN RECOMBINANT) [Suspect]
     Active Substance: HYALURONIDASE (HUMAN RECOMBINANT)
     Dosage: UNK
     Route: 065
     Dates: start: 20160308
  42. SYNVISC [Suspect]
     Active Substance: HYLAN G-F 20
  43. IBANDRONIC ACID [Suspect]
     Active Substance: IBANDRONIC ACID
     Indication: Metastases to bone
     Dosage: 50 MG, 1X/DAY
     Route: 048
     Dates: start: 20150518
  44. IBANDRONIC ACID [Suspect]
     Active Substance: IBANDRONIC ACID
     Dosage: 420 UNK
     Dates: start: 20180715
  45. HYALURONIDASE (HUMAN RECOMBINANT) [Suspect]
     Active Substance: HYALURONIDASE (HUMAN RECOMBINANT)
     Dosage: 600 MG, CYCLIC (3 DOSES WEEKLY)
     Dates: start: 20150825, end: 20151117
  46. HYALURONIDASE (HUMAN RECOMBINANT) [Suspect]
     Active Substance: HYALURONIDASE (HUMAN RECOMBINANT)
     Dosage: 600 MG, EVERY 2 WEEKS
     Dates: start: 20160623
  47. HYALURONIDASE (HUMAN RECOMBINANT) [Suspect]
     Active Substance: HYALURONIDASE (HUMAN RECOMBINANT)
     Dosage: 600 MG, EVERY 3 WEEKS
     Route: 065
     Dates: start: 20160308, end: 20160308
  48. IBANDRONIC ACID [Concomitant]
     Active Substance: IBANDRONIC ACID
     Indication: Metastases to bone
     Dosage: 50 MG, DAILY
     Route: 048
     Dates: start: 20150518
  49. RAMIPRIL [Concomitant]
     Active Substance: RAMIPRIL
     Indication: Ejection fraction decreased
     Dosage: 10 MG
     Route: 048
     Dates: start: 201603
  50. BENZYDAMINE [Concomitant]
     Active Substance: BENZYDAMINE
     Indication: Mucosal inflammation
     Dosage: 60 ML, 1X/DAY
     Route: 048
     Dates: start: 20150803, end: 20150817
  51. BENZYDAMINE [Concomitant]
     Active Substance: BENZYDAMINE
     Indication: Gingival swelling
     Dosage: 15 MG, 1X/DAY
     Route: 048
     Dates: start: 20150308, end: 20150817
  52. BENZYDAMINE [Concomitant]
     Active Substance: BENZYDAMINE
     Indication: Metastases to bone
     Dosage: 15 MG, 1X/DAY
     Route: 048
     Dates: start: 201508
  53. BISOPROLOL [Concomitant]
     Active Substance: BISOPROLOL
     Dosage: UNK
  54. CIPROFLOXACIN [Concomitant]
     Active Substance: CIPROFLOXACIN
     Indication: Vascular device infection
     Dosage: 1000 MG, 1X/DAY
     Route: 048
     Dates: start: 20151210, end: 20151215
  55. CIPROFLOXACIN [Concomitant]
     Active Substance: CIPROFLOXACIN
     Dosage: 1000 MG, 1X/DAY
     Route: 048
     Dates: start: 20160908
  56. AMOXICILLIN\CLAVULANATE POTASSIUM [Concomitant]
     Active Substance: AMOXICILLIN\CLAVULANATE POTASSIUM
     Indication: Vascular device infection
     Dosage: 120 MG
     Route: 058
     Dates: start: 20160127
  57. AMOXICILLIN\CLAVULANATE POTASSIUM [Concomitant]
     Active Substance: AMOXICILLIN\CLAVULANATE POTASSIUM
     Dosage: 1875 MG, 1X/DAY
     Route: 048
     Dates: start: 20160915
  58. XGEVA [Concomitant]
     Active Substance: DENOSUMAB
     Dosage: 24 MILLIGRAM EVERY 3 DAYS (CUMULATIVE DOSE: 16.0 MG)
     Route: 065
     Dates: start: 20150803
  59. XGEVA [Concomitant]
     Active Substance: DENOSUMAB
     Dosage: 120 MG, MONTHLY
     Route: 058
     Dates: start: 20160127, end: 201802
  60. XGEVA [Concomitant]
     Active Substance: DENOSUMAB
     Dosage: 3 DF EVERY 3 DAYS
     Route: 058
     Dates: start: 20150803
  61. DEXAMETHASONE [Concomitant]
     Active Substance: DEXAMETHASONE
     Dosage: 8 MG, UNK (FOR THREE DAYS EVERY 3 WEEKS)
     Route: 048
     Dates: start: 20150803
  62. GENTAMICIN [Concomitant]
     Active Substance: GENTAMICIN
     Indication: Device related infection
     Dosage: UNK
     Route: 065
     Dates: start: 20151130, end: 20151209
  63. IRON [Concomitant]
     Active Substance: IRON
     Indication: Serum ferritin decreased
     Dosage: UNK
     Route: 048
  64. IRON [Concomitant]
     Active Substance: IRON
     Dosage: 3 G, 1X/DAY
     Route: 065
     Dates: start: 20160918
  65. MEROPENEM [Concomitant]
     Active Substance: MEROPENEM
     Dosage: 3 G, 1X/DAY
     Route: 042
     Dates: start: 20160918
  66. ACETAMINOPHEN [Concomitant]
     Active Substance: ACETAMINOPHEN
     Indication: Device related infection
     Dosage: 2000 MG, 1X/DAY
     Route: 048
     Dates: start: 20141211, end: 20141224
  67. ACETAMINOPHEN [Concomitant]
     Active Substance: ACETAMINOPHEN
     Dosage: 4 G, 1X/DAY
     Route: 048
     Dates: start: 20160916
  68. PIPERACILLIN SODIUM\TAZOBACTAM SODIUM [Concomitant]
     Active Substance: PIPERACILLIN SODIUM\TAZOBACTAM SODIUM
     Dosage: UNK
     Route: 065
     Dates: start: 20151130, end: 20151209
  69. PIPERACILLIN SODIUM\TAZOBACTAM SODIUM [Concomitant]
     Active Substance: PIPERACILLIN SODIUM\TAZOBACTAM SODIUM
     Dosage: 600 MG, EVERY 3 WEEKS
     Route: 058
     Dates: start: 20160723
  70. ERGOCALCIFEROL [Concomitant]
     Active Substance: ERGOCALCIFEROL
  71. CALCIUM [Concomitant]
     Active Substance: CALCIUM
     Indication: Nutritional supplementation
  72. BENZYDAMINE HYDROCHLORIDE [Concomitant]
     Active Substance: BENZYDAMINE HYDROCHLORIDE
     Dosage: 15 MG, 2X/DAY
     Route: 048
     Dates: start: 20150308
  73. BENZYDAMINE HYDROCHLORIDE [Concomitant]
     Active Substance: BENZYDAMINE HYDROCHLORIDE
     Dosage: 60 ML, DAILY
     Route: 065
  74. BENZYDAMINE HYDROCHLORIDE [Concomitant]
     Active Substance: BENZYDAMINE HYDROCHLORIDE
     Dosage: 15ML, 2XDAY
     Route: 065
     Dates: start: 20150308
  75. BENZYDAMINE HYDROCHLORIDE [Concomitant]
     Active Substance: BENZYDAMINE HYDROCHLORIDE
     Indication: Gingival swelling
     Dosage: 15 MG, EVERY 6 HOURS
     Route: 065
     Dates: start: 20150308, end: 20150817
  76. BENZYDAMINE HYDROCHLORIDE [Concomitant]
     Active Substance: BENZYDAMINE HYDROCHLORIDE
     Dosage: 60 ML, 1X/DAY
     Route: 065
     Dates: start: 20150803, end: 20150817
  77. BENZYDAMINE HYDROCHLORIDE [Concomitant]
     Active Substance: BENZYDAMINE HYDROCHLORIDE
     Indication: Metastases to bone
     Dosage: 15 MG, EVERY 6 HOURS
     Dates: start: 201908
  78. BENZYDAMINE HYDROCHLORIDE [Concomitant]
     Active Substance: BENZYDAMINE HYDROCHLORIDE
     Indication: Mucosal inflammation
     Dosage: UNK
     Route: 065
     Dates: start: 201508

REACTIONS (20)
  - Rash [Recovered/Resolved]
  - Influenza like illness [Recovered/Resolved]
  - Anaemia [Recovered/Resolved]
  - Gingival swelling [Recovered/Resolved]
  - Mucosal inflammation [Recovered/Resolved]
  - Hot flush [Unknown]
  - Diarrhoea [Recovered/Resolved]
  - Lymphoedema [Recovered/Resolved]
  - Ejection fraction decreased [Recovered/Resolved]
  - Epistaxis [Recovered/Resolved]
  - Fatigue [Recovered/Resolved]
  - Osteonecrosis of jaw [Not Recovered/Not Resolved]
  - Gastrooesophageal reflux disease [Recovered/Resolved]
  - Device related infection [Recovered/Resolved]
  - Vascular device infection [Recovered/Resolved]
  - Sepsis [Recovered/Resolved]
  - Ejection fraction decreased [Recovered/Resolved]
  - Vascular device infection [Recovered/Resolved]
  - Vascular device infection [Recovered/Resolved]
  - Alopecia [Recovered/Resolved]

NARRATIVE: CASE EVENT DATE: 20150101
